FAERS Safety Report 6841707-6 (Version None)
Quarter: 2010Q3

REPORT INFORMATION
  Report Type: 
  Country: None (occurrence: None)
  Receive Date: 20100714
  Receipt Date: 20070712
  Transmission Date: 20110219
  Serious: No
  Sender: FDA-Public Use
  Company Number: US-PFIZER INC-2007059649

PATIENT
  Sex: Female
  Weight: 48.5 kg

DRUGS (5)
  1. CHANTIX [Suspect]
     Dates: start: 20070101
  2. FIORICET [Concomitant]
     Indication: HEADACHE
  3. VALSARTAN [Concomitant]
     Indication: HYPERTENSION
  4. THYROID TAB [Concomitant]
     Indication: THYROID DISORDER
  5. OXYCONTIN [Concomitant]
     Indication: INTERVERTEBRAL DISC PROTRUSION

REACTIONS (2)
  - NAUSEA [None]
  - VOMITING [None]
